FAERS Safety Report 13336302 (Version 2)
Quarter: 2017Q2

REPORT INFORMATION
  Report Type: Spontaneous
  Country: JP (occurrence: JP)
  Receive Date: 20170315
  Receipt Date: 20170413
  Transmission Date: 20170830
  Serious: Yes (Other)
  Sender: FDA-Public Use
  Company Number: JP-ROCHE-1906849

PATIENT
  Age: 33 Year
  Sex: Male

DRUGS (7)
  1. KOTAROU MAOUBUSHISAISHINNTOU (UNK INGREDIENTS) [Concomitant]
     Route: 048
     Dates: start: 20170221, end: 20170225
  2. CALONAL [Concomitant]
     Active Substance: ACETAMINOPHEN
     Route: 048
     Dates: start: 20170221
  3. TAMIFLU [Suspect]
     Active Substance: OSELTAMIVIR PHOSPHATE
     Indication: INFLUENZA
     Route: 048
     Dates: start: 20170221, end: 20170226
  4. MEQUITAZINE [Concomitant]
     Active Substance: MEQUITAZINE
     Route: 048
     Dates: start: 20170221, end: 20170225
  5. LIGHTGEN [Concomitant]
     Active Substance: CHLORPHENIRAMINE MALEATE\DIHYDROCODEINE\METHYLEPHEDRINE HYDROCHLORIDE, DL-
     Dosage: LIGHTGEN T
     Route: 048
     Dates: start: 20170221, end: 20170225
  6. AZITHROMYCIN HYDRATE [Concomitant]
     Active Substance: AZITHROMYCIN DIHYDRATE
     Route: 048
     Dates: start: 20170221, end: 20170223
  7. AMBROXOL HYDROCHLORIDE [Concomitant]
     Active Substance: AMBROXOL HYDROCHLORIDE
     Route: 048
     Dates: start: 20170221, end: 20170225

REACTIONS (1)
  - Deafness unilateral [Recovered/Resolved with Sequelae]

NARRATIVE: CASE EVENT DATE: 20170222
